FAERS Safety Report 9846098 (Version 4)
Quarter: 2014Q2

REPORT INFORMATION
  Report Type: Spontaneous
  Country: JP (occurrence: JP)
  Receive Date: 20140127
  Receipt Date: 20140526
  Transmission Date: 20141212
  Serious: Yes (Hospitalization, Other)
  Sender: FDA-Public Use
  Company Number: PHHY2014JP009095

PATIENT
  Sex: Male

DRUGS (6)
  1. ZOMETA [Suspect]
     Indication: PROSTATE CANCER
     Dosage: 4 MG, UNK
     Route: 041
     Dates: start: 20061120
  2. CASODEX [Concomitant]
     Indication: CHEMOTHERAPY
     Dosage: 80 MG, UNK
     Route: 058
     Dates: start: 20061106, end: 20090105
  3. LEUPLIN [Concomitant]
     Indication: CHEMOTHERAPY
     Dosage: 11.25 MG,
     Route: 058
     Dates: start: 20061030, end: 20131021
  4. ESTRACYT [Concomitant]
     Dosage: 630.4 MG, UNK
     Route: 058
     Dates: start: 20061030, end: 20061030
  5. ODYNE [Concomitant]
     Dosage: 375 MG, UNK
     Route: 058
     Dates: start: 20090202, end: 20090803
  6. PROSEXOL [Concomitant]
     Dosage: 1.5 MG, UNK
     Route: 058
     Dates: start: 20090907

REACTIONS (8)
  - Osteonecrosis of jaw [Unknown]
  - Fistula [Unknown]
  - Pain [Recovering/Resolving]
  - Exposed bone in jaw [Recovering/Resolving]
  - Erythema [Recovering/Resolving]
  - Swelling [Recovering/Resolving]
  - Oral disorder [Recovering/Resolving]
  - Osteomyelitis [Unknown]
